FAERS Safety Report 4277052-5 (Version None)
Quarter: 2004Q1

REPORT INFORMATION
  Report Type: 
  Country: None (occurrence: None)
  Receive Date: 20040120
  Receipt Date: 20040120
  Transmission Date: 20041129
  Serious: Yes (Hospitalization)
  Sender: FDA-Public Use
  Company Number: None

PATIENT
  Age: 55 Year
  Sex: Male
  Weight: 118.3888 kg

DRUGS (38)
  1. CLOPIDOGREL BISULFATE [Suspect]
     Indication: TRANSIENT ISCHAEMIC ATTACK
     Dosage: 75 MG DAILY
     Dates: start: 20020919
  2. ACCU-CHEK COMFORT CV (GLUCOSE)TEST STRIP [Concomitant]
  3. ALCOHOL PREP PAD [Concomitant]
  4. AMMONIUM LACTATE [Concomitant]
  5. ARTIFICIAL TEARS [Concomitant]
  6. BACITRACIN [Concomitant]
  7. HACITRACIN/HC/NEO/POLYMX [Concomitant]
  8. CLOPIDOGREL BISULFATE [Concomitant]
  9. CYANCOBALAMIN [Concomitant]
  10. FOLIC ACID [Concomitant]
  11. FUROSEMIDE [Concomitant]
  12. GAUZE PAD [Concomitant]
  13. GAUZE, FINE MESH [Concomitant]
  14. GLOVE VINYL MEDIUM [Concomitant]
  15. NOVOLIN 70/30 [Concomitant]
  16. HUMULIN R [Concomitant]
  17. INSULIN SYRG [Concomitant]
  18. ISOSORBIDE MONONITRATE [Concomitant]
  19. LANCET [Concomitant]
  20. LEVOTHYROXINE SODIUM [Concomitant]
  21. LOPERAMIDE HCL [Concomitant]
  22. LORAZEPAM [Concomitant]
  23. METOLAZONE [Concomitant]
  24. METOPROLOL TARTRATE [Concomitant]
  25. MORPHINE [Concomitant]
  26. MORPHINE [Concomitant]
  27. MULTI-VITAMIN [Concomitant]
  28. NITROGLYCERIN [Concomitant]
  29. OXYCODONE HCL [Concomitant]
  30. POTASSIUM CL [Concomitant]
  31. PROSTAGLANDIN E [Concomitant]
  32. RANITIDINE HCL [Concomitant]
  33. SIMVASTATIN [Concomitant]
  34. SODIUM CHLORIDE [Concomitant]
  35. TAPE, HYPOALLERGENIC [Concomitant]
  36. TAPE, PAPER [Concomitant]
  37. TUBERCULIN SYRINGE [Concomitant]
  38. VITAMIN E [Concomitant]

REACTIONS (2)
  - ANAEMIA [None]
  - GASTROINTESTINAL HAEMORRHAGE [None]
